FAERS Safety Report 5584049-1 (Version None)
Quarter: 2008Q1

REPORT INFORMATION
  Report Type: 
  Country: None (occurrence: None)
  Receive Date: 20080108
  Receipt Date: 20071227
  Transmission Date: 20080703
  Serious: Yes (Hospitalization)
  Sender: FDA-Public Use
  Company Number: TW-ROCHE-538969

PATIENT
  Age: 22 Year
  Sex: Female

DRUGS (2)
  1. XENICAL [Suspect]
     Indication: WEIGHT CONTROL
     Dosage: STOP DATE REPORTED: 2007
     Route: 065
     Dates: start: 20071001
  2. UNSPECIFIED DRUG [Suspect]
     Indication: DRUG USE FOR UNKNOWN INDICATION
     Dosage: DOSE FORM: SOFT CAPSULE
     Route: 065
     Dates: start: 20071001

REACTIONS (3)
  - COMA [None]
  - HEPATIC FAILURE [None]
  - INFLUENZA [None]
